FAERS Safety Report 5135901-2 (Version None)
Quarter: 2006Q4

REPORT INFORMATION
  Report Type: 
  Country: None (occurrence: None)
  Receive Date: 20061020
  Receipt Date: 20061009
  Transmission Date: 20070319
  Serious: Yes (Hospitalization)
  Sender: FDA-Public Use
  Company Number: 2006BH013710

PATIENT
  Age: 30 Year
  Sex: Female
  Weight: 58.9676 kg

DRUGS (9)
  1. PROMETHAZINE [Suspect]
     Indication: DRUG USE FOR UNKNOWN INDICATION
     Dosage: IV
     Route: 042
     Dates: start: 20050101
  2. ORTHO EVRA [Suspect]
     Indication: CONTRACEPTION
     Dosage: TDERM
     Route: 062
     Dates: start: 20040101
  3. PEPCID AC [Concomitant]
  4. TYLENOL EXTRA-STRENGTH [Concomitant]
  5. IRON [Concomitant]
  6. ZOLPIDEM TARTRATE [Concomitant]
  7. FLUOXETINE HYDROCHLORIDE [Concomitant]
  8. ACETAMINOPHEN [Concomitant]
  9. NITROFURANTOIN [Concomitant]

REACTIONS (4)
  - DEEP VEIN THROMBOSIS [None]
  - NEPHROLITHIASIS [None]
  - PHLEBITIS SUPERFICIAL [None]
  - SQUAMOUS CELL CARCINOMA OF THE CERVIX [None]
